FAERS Safety Report 17925610 (Version 5)
Quarter: 2021Q3

REPORT INFORMATION
  Report Type: Spontaneous
  Country: US (occurrence: US)
  Receive Date: 20200622
  Receipt Date: 20210803
  Transmission Date: 20211014
  Serious: Yes (Hospitalization, Disabling, Other)
  Sender: FDA-Public Use
  Company Number: US-ASTRAZENECA-2020SE77026

PATIENT
  Age: 55 Year
  Sex: Male
  Weight: 96.2 kg

DRUGS (96)
  1. NEXIUM [Suspect]
     Active Substance: ESOMEPRAZOLE MAGNESIUM
     Indication: GASTROOESOPHAGEAL REFLUX DISEASE
     Route: 048
     Dates: start: 2008, end: 2015
  2. CILOSTAZOL. [Concomitant]
     Active Substance: CILOSTAZOL
     Indication: CARDIOVASCULAR DISORDER
     Dates: start: 2018
  3. SPIRONOLACTONE. [Concomitant]
     Active Substance: SPIRONOLACTONE
     Indication: HYPERTENSION
     Dates: start: 2018, end: 2019
  4. CIPROFLOXACIN. [Concomitant]
     Active Substance: CIPROFLOXACIN
  5. ETODOLAC. [Concomitant]
     Active Substance: ETODOLAC
  6. METRONIDAZOLE. [Concomitant]
     Active Substance: METRONIDAZOLE
  7. CLOPIDOGREL [Concomitant]
     Active Substance: CLOPIDOGREL BISULFATE
  8. JANUMET [Concomitant]
     Active Substance: METFORMIN HYDROCHLORIDE\SITAGLIPTIN PHOSPHATE
     Indication: DIABETES MELLITUS
     Dates: start: 2013, end: 2016
  9. PREDNISONE. [Concomitant]
     Active Substance: PREDNISONE
     Indication: SINUS DISORDER
     Dates: start: 2010, end: 2011
  10. CLONIDINE. [Concomitant]
     Active Substance: CLONIDINE
     Indication: HYPERTENSION
     Dates: end: 2018
  11. FENOFIBRATE. [Concomitant]
     Active Substance: FENOFIBRATE
  12. NASACORT [Concomitant]
     Active Substance: TRIAMCINOLONE ACETONIDE
  13. CLINDAMYCIN. [Concomitant]
     Active Substance: CLINDAMYCIN
  14. DILTIAZEM. [Concomitant]
     Active Substance: DILTIAZEM
  15. AMLODIPINE BESYLATE. [Concomitant]
     Active Substance: AMLODIPINE BESYLATE
     Indication: HYPERTENSION
     Dates: start: 2020
  16. DOXAZOSIN [Concomitant]
     Active Substance: DOXAZOSIN MESYLATE
     Indication: HYPERTENSION
     Dates: start: 2019
  17. ISOSORBIDE. [Concomitant]
     Active Substance: ISOSORBIDE
     Dates: start: 2020
  18. COREG [Concomitant]
     Active Substance: CARVEDILOL
     Dates: start: 1980, end: 1990
  19. NORCO [Concomitant]
     Active Substance: ACETAMINOPHEN\HYDROCODONE BITARTRATE
     Dates: start: 1980, end: 1990
  20. NEXIUM [Suspect]
     Active Substance: ESOMEPRAZOLE MAGNESIUM
     Indication: GASTROOESOPHAGEAL REFLUX DISEASE
     Dosage: GENERIC
     Route: 065
     Dates: start: 2001, end: 2018
  21. NEXIUM 24HR [Suspect]
     Active Substance: ESOMEPRAZOLE MAGNESIUM
     Indication: GASTROOESOPHAGEAL REFLUX DISEASE
     Route: 048
  22. NASACORT [Concomitant]
     Active Substance: TRIAMCINOLONE ACETONIDE
  23. CLINDAMYCIN. [Concomitant]
     Active Substance: CLINDAMYCIN
  24. CHANTIX [Concomitant]
     Active Substance: VARENICLINE TARTRATE
  25. CYANOCOBALAMIN. [Concomitant]
     Active Substance: CYANOCOBALAMIN
  26. GLIPIZIDE. [Concomitant]
     Active Substance: GLIPIZIDE
     Indication: BLOOD GLUCOSE INCREASED
     Dates: start: 2010
  27. MINOXIDIL. [Concomitant]
     Active Substance: MINOXIDIL
     Dates: start: 1980, end: 1990
  28. BUMEX [Concomitant]
     Active Substance: BUMETANIDE
     Dates: start: 1980, end: 1990
  29. CARAFATE [Concomitant]
     Active Substance: SUCRALFATE
     Indication: GASTROOESOPHAGEAL REFLUX DISEASE
     Dates: start: 2018, end: 2018
  30. FLOMAX [Concomitant]
     Active Substance: TAMSULOSIN HYDROCHLORIDE
  31. PROMETHAZINE [Concomitant]
     Active Substance: PROMETHAZINE HYDROCHLORIDE
  32. AZOR [Concomitant]
     Active Substance: AMLODIPINE BESYLATE\OLMESARTAN MEDOXOMIL
  33. BUMETANIDE. [Concomitant]
     Active Substance: BUMETANIDE
     Indication: FLUID IMBALANCE
     Dates: start: 2015
  34. ASPIRIN. [Concomitant]
     Active Substance: ASPIRIN
  35. CEFPROZIL. [Concomitant]
     Active Substance: CEFPROZIL
  36. NIFEDIPINE. [Concomitant]
     Active Substance: NIFEDIPINE
     Indication: HYPERTENSION
     Dates: start: 2018, end: 2018
  37. OLMESARTAN [Concomitant]
     Active Substance: OLMESARTAN
     Dates: start: 1980, end: 1990
  38. NEXIUM [Suspect]
     Active Substance: ESOMEPRAZOLE MAGNESIUM
     Indication: GASTROOESOPHAGEAL REFLUX DISEASE
     Route: 048
     Dates: start: 2001, end: 2018
  39. PANTOPRAZOLE [Suspect]
     Active Substance: PANTOPRAZOLE
     Indication: GASTROOESOPHAGEAL REFLUX DISEASE
     Route: 065
     Dates: start: 2016
  40. LANTUS [Concomitant]
     Active Substance: INSULIN GLARGINE
  41. HUMALOG [Concomitant]
     Active Substance: INSULIN LISPRO
     Indication: DIABETES MELLITUS
     Dates: start: 2018
  42. HYOSCYAMINE. [Concomitant]
     Active Substance: HYOSCYAMINE
  43. BYSTOLIC [Concomitant]
     Active Substance: NEBIVOLOL HYDROCHLORIDE
  44. ARTHROTEC [Concomitant]
     Active Substance: DICLOFENAC SODIUM\MISOPROSTOL
  45. SULFAMETHOXAZOLE [Concomitant]
     Active Substance: SULFAMETHOXAZOLE
  46. AZITHROMYCIN ANHYDROUS. [Concomitant]
     Active Substance: AZITHROMYCIN ANHYDROUS
  47. BACITRACIN. [Concomitant]
     Active Substance: BACITRACIN
  48. ATORVASTATIN [Concomitant]
     Active Substance: ATORVASTATIN
     Indication: BLOOD CHOLESTEROL
  49. CEFPROZIL. [Concomitant]
     Active Substance: CEFPROZIL
  50. SERTRALINE [Concomitant]
     Active Substance: SERTRALINE HYDROCHLORIDE
     Indication: ANXIETY
     Dates: start: 2020, end: 2020
  51. ROLAIDS [Concomitant]
     Active Substance: CALCIUM CARBONATE\MAGNESIUM HYDROXIDE
     Dates: start: 1980, end: 1990
  52. ALKA?SELZER [Concomitant]
     Dates: start: 1980, end: 1990
  53. ATROPINE SULFATE. [Concomitant]
     Active Substance: ATROPINE SULFATE
     Dates: start: 1980, end: 1990
  54. ZETIA [Concomitant]
     Active Substance: EZETIMIBE
     Dates: start: 1980, end: 1990
  55. VERAPAMIL [Concomitant]
     Active Substance: VERAPAMIL HYDROCHLORIDE
     Dates: start: 2008, end: 2009
  56. VITAMIN D [Concomitant]
     Active Substance: VITAMIN D NOS
  57. CYANOCOBALAMIN. [Concomitant]
     Active Substance: CYANOCOBALAMIN
  58. HYZAAR [Concomitant]
     Active Substance: HYDROCHLOROTHIAZIDE\LOSARTAN POTASSIUM
  59. TAMSULOSIN [Concomitant]
     Active Substance: TAMSULOSIN
     Indication: PROSTATOMEGALY
     Dates: end: 2018
  60. CARVEDILOL. [Concomitant]
     Active Substance: CARVEDILOL
     Indication: HYPERTENSION
     Dates: start: 2018, end: 2019
  61. TRESIBA [Concomitant]
     Active Substance: INSULIN DEGLUDEC
     Indication: DIABETES MELLITUS
     Dates: start: 2018
  62. EZETIMIBE. [Concomitant]
     Active Substance: EZETIMIBE
     Indication: BLOOD CHOLESTEROL
  63. LABETALOL [Concomitant]
     Active Substance: LABETALOL\LABETALOL HYDROCHLORIDE
     Indication: HYPERTENSION
     Dates: start: 2020
  64. PLETAL [Concomitant]
     Active Substance: CILOSTAZOL
     Dates: start: 1980, end: 1990
  65. HYDROCODONE/ACETAMINOPHEN [Concomitant]
     Active Substance: ACETAMINOPHEN\HYDROCODONE
  66. MINOXIDIL. [Concomitant]
     Active Substance: MINOXIDIL
     Indication: BLOOD PRESSURE MEASUREMENT
     Dates: start: 2018
  67. ATORVASTATIN [Concomitant]
     Active Substance: ATORVASTATIN
  68. DILTIAZEM. [Concomitant]
     Active Substance: DILTIAZEM
  69. GLIPIZIDE. [Concomitant]
     Active Substance: GLIPIZIDE
     Dates: start: 1980, end: 1990
  70. JANUVIA [Concomitant]
     Active Substance: SITAGLIPTIN PHOSPHATE
     Dates: start: 1980, end: 1990
  71. LOSARTAN. [Concomitant]
     Active Substance: LOSARTAN
     Indication: HYPERTENSION
     Dates: start: 2015
  72. DOXYCYCLINE. [Concomitant]
     Active Substance: DOXYCYCLINE
  73. NOREL [Concomitant]
  74. VIAGRA [Concomitant]
     Active Substance: SILDENAFIL CITRATE
  75. CEPHALEXIN. [Concomitant]
     Active Substance: CEPHALEXIN
  76. TUSSIONEX PENNKINETIC [Concomitant]
     Active Substance: CHLORPHENIRAMINE\HYDROCODONE
  77. NITROGLYCERIN. [Concomitant]
     Active Substance: NITROGLYCERIN
  78. RAMIPRIL. [Concomitant]
     Active Substance: RAMIPRIL
  79. MIRTAZAPINE. [Concomitant]
     Active Substance: MIRTAZAPINE
  80. IBUPROFEN. [Concomitant]
     Active Substance: IBUPROFEN
  81. IBUPROFEN. [Concomitant]
     Active Substance: IBUPROFEN
  82. LIDOCAINE. [Concomitant]
     Active Substance: LIDOCAINE
  83. TRIBENZOR [Concomitant]
     Active Substance: AMLODIPINE BESYLATE\HYDROCHLOROTHIAZIDE\OLMESARTAN MEDOXOMIL
  84. CARVEDILOL. [Concomitant]
     Active Substance: CARVEDILOL
     Indication: CARDIAC FAILURE
     Dates: start: 2018, end: 2019
  85. TUMS [Concomitant]
     Active Substance: CALCIUM CARBONATE
     Dates: start: 1980, end: 1990
  86. KETOROLAC [Concomitant]
     Active Substance: KETOROLAC TROMETHAMINE
  87. LEVEMIR [Concomitant]
     Active Substance: INSULIN DETEMIR
  88. CHLORTHALIDONE. [Concomitant]
     Active Substance: CHLORTHALIDONE
  89. ASPIRIN. [Concomitant]
     Active Substance: ASPIRIN
     Indication: BLOOD VISCOSITY ABNORMAL
     Dates: start: 2015
  90. CHANTIX [Concomitant]
     Active Substance: VARENICLINE TARTRATE
  91. CELECOXIB. [Concomitant]
     Active Substance: CELECOXIB
  92. BIDIL [Concomitant]
     Active Substance: HYDRALAZINE HYDROCHLORIDE\ISOSORBIDE DINITRATE
     Indication: BLOOD PRESSURE MEASUREMENT
     Dates: start: 2018, end: 2019
  93. HYDRALAZINE [Concomitant]
     Active Substance: HYDRALAZINE HYDROCHLORIDE
     Indication: HYPERTENSION
     Dates: start: 2020
  94. PEPTO?BISMOL [Concomitant]
     Active Substance: BISMUTH SUBSALICYLATE
     Dates: start: 1980, end: 1990
  95. BACTRIM [Concomitant]
     Active Substance: SULFAMETHOXAZOLE\TRIMETHOPRIM
     Dates: start: 1980, end: 1990
  96. ALPRAZOLAM. [Concomitant]
     Active Substance: ALPRAZOLAM
     Dates: start: 1980, end: 1990

REACTIONS (8)
  - Tubulointerstitial nephritis [Unknown]
  - Hyperparathyroidism secondary [Unknown]
  - Nephrogenic anaemia [Unknown]
  - Acute kidney injury [Unknown]
  - Chronic kidney disease-mineral and bone disorder [Unknown]
  - Renal failure [Unknown]
  - Chronic kidney disease [Not Recovered/Not Resolved]
  - End stage renal disease [Unknown]

NARRATIVE: CASE EVENT DATE: 2012
